FAERS Safety Report 8259028-6 (Version None)
Quarter: 2012Q2

REPORT INFORMATION
  Report Type: 
  Country: None (occurrence: None)
  Receive Date: 20120404
  Receipt Date: 20120330
  Transmission Date: 20120825
  Serious: Yes (Other)
  Sender: FDA-Public Use
  Company Number: IT-NOVOPROD-348465

PATIENT
  Age: 55 Year
  Sex: Female

DRUGS (4)
  1. OLMESARTAN MEDOXOMIL [Concomitant]
     Dosage: 1 TAB, QD
     Route: 048
     Dates: start: 20091001
  2. METFORMINA                         /00082701/ [Concomitant]
     Dosage: 1 TAB, QD
     Route: 048
     Dates: start: 20110103
  3. SIMESTAT [Concomitant]
     Dosage: 1 TAB, QD
     Route: 048
     Dates: start: 20100101, end: 20110901
  4. VICTOZA [Suspect]
     Indication: TYPE 2 DIABETES MELLITUS
     Dosage: 1.8 MG, QD
     Route: 058
     Dates: start: 20110103

REACTIONS (1)
  - THYROID NEOPLASM [None]
